FAERS Safety Report 5507499-8 (Version None)
Quarter: 2007Q4

REPORT INFORMATION
  Report Type: 
  Country: None (occurrence: None)
  Receive Date: 20071106
  Receipt Date: 20071023
  Transmission Date: 20080405
  Serious: Yes (Death)
  Sender: FDA-Public Use
  Company Number: JP-ELI_LILLY_AND_COMPANY-JP200710004077

PATIENT
  Sex: Female
  Weight: 40 kg

DRUGS (3)
  1. RALOXIFENE HYDROCHLORIDE [Suspect]
     Indication: OSTEOPOROSIS POSTMENOPAUSAL
     Dosage: 60 MG, DAILY (1/D)
     Route: 048
     Dates: start: 20050408
  2. LORCAM [Concomitant]
     Indication: SPINAL OSTEOARTHRITIS
     Dosage: 12 MG, DAILY (1/D)
     Route: 048
     Dates: start: 20050405
  3. MUCOSTA [Concomitant]
     Indication: GASTRITIS
     Dosage: 300 MG, DAILY (1/D)
     Route: 048
     Dates: start: 20050405

REACTIONS (1)
  - CARDIAC FAILURE ACUTE [None]
